FAERS Safety Report 5290700-6 (Version None)
Quarter: 2007Q2

REPORT INFORMATION
  Report Type: 
  Country: None (occurrence: None)
  Receive Date: 20070405
  Receipt Date: 20070405
  Transmission Date: 20071010
  Serious: Yes (Hospitalization)
  Sender: FDA-Public Use
  Company Number: None

PATIENT
  Sex: Female
  Weight: 70 kg

DRUGS (7)
  1. SEROQUEL [Suspect]
     Indication: SUICIDE ATTEMPT
     Dosage: MG PO
     Route: 048
  2. PAROXETINE [Concomitant]
  3. EFAVIRENZ [Concomitant]
  4. NEVIRAPINE [Concomitant]
  5. EMTRICITABINE [Concomitant]
  6. TENOFOVIR [Concomitant]
  7. PENICILLIN [Concomitant]

REACTIONS (5)
  - ELECTROCARDIOGRAM QT PROLONGED [None]
  - FALL [None]
  - HYPOTENSION [None]
  - SEDATION [None]
  - TACHYCARDIA [None]
